FAERS Safety Report 13453044 (Version 1)
Quarter: 2017Q2

REPORT INFORMATION
  Report Type: Report from Study
  Country: GB (occurrence: GB)
  Receive Date: 20170418
  Receipt Date: 20170418
  Transmission Date: 20170830
  Serious: Yes (Death)
  Sender: FDA-Public Use
  Company Number: GB-PFIZER INC-2017162079

PATIENT
  Age: 17 Year
  Sex: Male

DRUGS (9)
  1. CISPLATIN. [Suspect]
     Active Substance: CISPLATIN
     Indication: GERM CELL CANCER
     Dosage: 120 MG/M2, CYCLIC: NO OF DAYS 1
  2. CISPLATIN. [Suspect]
     Active Substance: CISPLATIN
     Indication: TESTIS CANCER
  3. METHOTREXATE SODIUM. [Suspect]
     Active Substance: METHOTREXATE SODIUM
     Indication: GERM CELL CANCER
     Dosage: 300 MG/M2, CYCLIC: NO OF DAYS 1
  4. VINCRISTINE SULFATE. [Suspect]
     Active Substance: VINCRISTINE SULFATE
     Indication: GERM CELL CANCER
     Dosage: 1 MG/M2, CYCLIC: NO OF DAYS 1
  5. ETOPOSIDE. [Suspect]
     Active Substance: ETOPOSIDE
     Indication: GERM CELL CANCER
     Dosage: 100 MG/M2, CYCLIC: NO OF DAYS 3
  6. BLEOMYCIN SULFATE [Suspect]
     Active Substance: BLEOMYCIN SULFATE
     Indication: GERM CELL CANCER
     Dosage: 15 IU, CYCLIC: NO OF DAYS 1
  7. ETOPOSIDE. [Suspect]
     Active Substance: ETOPOSIDE
     Indication: TESTIS CANCER
  8. ACTINOMYCIN D [Suspect]
     Active Substance: DACTINOMYCIN
     Indication: GERM CELL CANCER
     Dosage: 0.5 MG, CYCLIC: NO OF DAYS 3
  9. CYCLOPHOSPHAMIDE. [Suspect]
     Active Substance: CYCLOPHOSPHAMIDE
     Indication: GERM CELL CANCER
     Dosage: 500 MG/M2, CYCLIC: NO OF DAYS 1

REACTIONS (2)
  - Acute myeloid leukaemia [Fatal]
  - Second primary malignancy [Fatal]
